FAERS Safety Report 16913002 (Version 1)
Quarter: 2019Q4

REPORT INFORMATION
  Report Type: Spontaneous
  Country: US (occurrence: US)
  Receive Date: 20190821
  Receipt Date: 20190821
  Transmission Date: 20200122
  Serious: No
  Sender: FDA-Public Use
  Company Number: None

PATIENT
  Age: 62 Year
  Sex: Female

DRUGS (1)
  1. VOSEVI [Suspect]
     Active Substance: SOFOSBUVIR\VELPATASVIR\VOXILAPREVIR
     Route: 048
     Dates: start: 201908

REACTIONS (8)
  - Asthenia [None]
  - Pain [None]
  - Chest discomfort [None]
  - Breast enlargement [None]
  - Fatigue [None]
  - Back pain [None]
  - Weight increased [None]
  - Gastrointestinal disorder [None]

NARRATIVE: CASE EVENT DATE: 20190801
